FAERS Safety Report 13883463 (Version 2)
Quarter: 2017Q3

REPORT INFORMATION
  Report Type: Spontaneous
  Country: US (occurrence: US)
  Receive Date: 20170818
  Receipt Date: 20170920
  Transmission Date: 20171127
  Serious: No
  Sender: FDA-Public Use
  Company Number: PHEH2017US025268

PATIENT
  Sex: Male

DRUGS (1)
  1. LORATADINE TABLETS [Suspect]
     Active Substance: LORATADINE
     Indication: HYPERSENSITIVITY
     Dosage: 1 DF, QD
     Route: 048
     Dates: start: 20170809

REACTIONS (1)
  - Yawning [Not Recovered/Not Resolved]

NARRATIVE: CASE EVENT DATE: 20170809
